FAERS Safety Report 11626426 (Version 1)
Quarter: 2015Q4

REPORT INFORMATION
  Report Type: Spontaneous
  Country: US (occurrence: US)
  Receive Date: 20151013
  Receipt Date: 20151013
  Transmission Date: 20160304
  Serious: No
  Sender: FDA-Public Use
  Company Number: US-ROCHE-1580355

PATIENT
  Sex: Female

DRUGS (6)
  1. MILK THISTLE [Concomitant]
     Active Substance: MILK THISTLE
  2. ZELBORAF [Suspect]
     Active Substance: VEMURAFENIB
     Indication: MALIGNANT MELANOMA
     Route: 048
     Dates: start: 20150116
  3. CLORAZEPATE DIPOTASSIUM. [Concomitant]
     Active Substance: CLORAZEPATE DIPOTASSIUM
  4. ASPIRIN. [Concomitant]
     Active Substance: ASPIRIN
  5. DOXYCYCLINE HYCLATE. [Concomitant]
     Active Substance: DOXYCYCLINE HYCLATE
  6. ISOSORBIDE DINITRATE. [Concomitant]
     Active Substance: ISOSORBIDE DINITRATE

REACTIONS (4)
  - Nausea [Unknown]
  - Skin exfoliation [Unknown]
  - Alopecia [Unknown]
  - Arthralgia [Unknown]
